FAERS Safety Report 5025483-8 (Version None)
Quarter: 2006Q2

REPORT INFORMATION
  Report Type: 
  Country: None (occurrence: None)
  Receive Date: 20060608
  Receipt Date: 20060530
  Transmission Date: 20061013
  Serious: Yes (Hospitalization)
  Sender: FDA-Public Use
  Company Number: 2006BI007845

PATIENT
  Sex: Female

DRUGS (2)
  1. AVONEX [Suspect]
     Dosage: IM
     Route: 030
     Dates: start: 19991001
  2. AVONEX [Suspect]
     Dosage: IM
     Route: 030

REACTIONS (1)
  - COLITIS ULCERATIVE [None]
